FAERS Safety Report 6794797-3 (Version None)
Quarter: 2010Q2

REPORT INFORMATION
  Report Type: 
  Country: None (occurrence: None)
  Receive Date: 20100624
  Receipt Date: 20100624
  Transmission Date: 20101027
  Serious: Yes (Other)
  Sender: FDA-Public Use
  Company Number: None

PATIENT
  Sex: Female
  Weight: 84.1 kg

DRUGS (1)
  1. CLOFARABINE [Suspect]
     Indication: ACUTE MYELOID LEUKAEMIA
     Dosage: 60 MG DAILY IV DRIP
     Route: 041
     Dates: start: 20100603, end: 20100607

REACTIONS (5)
  - DISORIENTATION [None]
  - MENTAL STATUS CHANGES [None]
  - PARTIAL SEIZURES [None]
  - SYNCOPE [None]
  - TRANSIENT ISCHAEMIC ATTACK [None]
